FAERS Safety Report 6523127-7 (Version None)
Quarter: 2009Q4

REPORT INFORMATION
  Report Type: 
  Country: None (occurrence: None)
  Receive Date: 20091222
  Receipt Date: 20091209
  Transmission Date: 20100525
  Serious: Yes (Other)
  Sender: FDA-Public Use
  Company Number: DSM-2009-01924

PATIENT
  Age: 70 Year
  Sex: Male
  Weight: 96 kg

DRUGS (1)
  1. OLMESARTAN MEDOXOMIL/AMLODIPINE/HYDROCHLOROTHIAZIDE [Suspect]
     Indication: ESSENTIAL HYPERTENSION
     Dosage: 40 MG / 5 MG (1 IN 1 D), ORAL
     Route: 048
     Dates: start: 20091007, end: 20091201

REACTIONS (2)
  - DERMATITIS [None]
  - OEDEMA PERIPHERAL [None]
